FAERS Safety Report 12466250 (Version 2)
Quarter: 2016Q3

REPORT INFORMATION
  Report Type: Spontaneous
  Country: CA (occurrence: CA)
  Receive Date: 20160614
  Receipt Date: 20160718
  Transmission Date: 20161109
  Serious: Yes (Other)
  Sender: FDA-Public Use
  Company Number: PHHY2016CA079802

PATIENT
  Age: 60 Year
  Sex: Female

DRUGS (2)
  1. CHLOROQUINE. [Suspect]
     Active Substance: CHLOROQUINE
     Indication: MALARIA
     Route: 065
  2. METHOTREXATE (METHOTREXATE SODIUM) [Suspect]
     Active Substance: METHOTREXATE SODIUM
     Indication: RHEUMATOID ARTHRITIS
     Dosage: 0.9 ML, QW
     Route: 058

REACTIONS (2)
  - Cataract [Recovering/Resolving]
  - Off label use [Unknown]
